FAERS Safety Report 20866729 (Version 1)
Quarter: 2022Q2

REPORT INFORMATION
  Report Type: Spontaneous
  Country: US (occurrence: US)
  Receive Date: 20220524
  Receipt Date: 20220524
  Transmission Date: 20220721
  Serious: Yes (Other)
  Sender: FDA-Public Use
  Company Number: US-KALA PHARAMACEUTICALS-2022KLA00047

PATIENT
  Sex: Female
  Weight: 60.317 kg

DRUGS (7)
  1. INVELTYS [Suspect]
     Active Substance: LOTEPREDNOL ETABONATE
     Indication: Cataract operation
     Dosage: UNK, 3X/DAY
     Route: 047
     Dates: start: 202203, end: 2022
  2. INVELTYS [Suspect]
     Active Substance: LOTEPREDNOL ETABONATE
     Dosage: UNK, 2X/DAY
     Route: 047
     Dates: start: 2022, end: 2022
  3. INVELTYS [Suspect]
     Active Substance: LOTEPREDNOL ETABONATE
     Dosage: 1 GTT, 1X/DAY
     Route: 047
     Dates: start: 2022
  4. DEVICE [Suspect]
     Active Substance: DEVICE
     Indication: COVID-19 screening
  5. UNSPECIFIED INGREDIENT [Suspect]
     Active Substance: UNSPECIFIED INGREDIENT
     Indication: Cataract operation
     Dosage: UNK
     Dates: start: 20220315, end: 20220315
  6. UNSPECIFIED INGREDIENT [Suspect]
     Active Substance: UNSPECIFIED INGREDIENT
     Indication: Cataract operation
     Dosage: UNK, 3X/DAY
     Dates: start: 202203
  7. OFLOXACIN [Suspect]
     Active Substance: OFLOXACIN
     Indication: Cataract operation
     Dosage: UNK, 1X/DAY
     Dates: start: 20220314

REACTIONS (15)
  - Trigeminal neuropathy [Not Recovered/Not Resolved]
  - Cataract [Not Recovered/Not Resolved]
  - Discomfort [Unknown]
  - Swelling [Unknown]
  - Swelling face [Unknown]
  - Dry eye [Unknown]
  - Eye swelling [Unknown]
  - Vitreous floaters [Unknown]
  - Vision blurred [Unknown]
  - Nasal inflammation [Not Recovered/Not Resolved]
  - Off label use [Not Recovered/Not Resolved]
  - Musculoskeletal discomfort [Unknown]
  - Nasal discomfort [Not Recovered/Not Resolved]
  - Impaired healing [Not Recovered/Not Resolved]
  - Unevaluable event [Unknown]

NARRATIVE: CASE EVENT DATE: 20220101
